FAERS Safety Report 21453866 (Version 2)
Quarter: 2022Q4

REPORT INFORMATION
  Report Type: Spontaneous
  Country: US (occurrence: US)
  Receive Date: 20221013
  Receipt Date: 20221212
  Transmission Date: 20230112
  Serious: No
  Sender: FDA-Public Use
  Company Number: US-SA-SAC20221010000198

PATIENT
  Sex: Female
  Weight: 99.5 kg

DRUGS (3)
  1. NEXVIAZYME [Suspect]
     Active Substance: AVALGLUCOSIDASE ALFA-NGPT
     Indication: Glycogen storage disease type II
     Dosage: 1900 MG, QOW
     Route: 042
     Dates: start: 201808
  2. NEXVIAZYME [Suspect]
     Active Substance: AVALGLUCOSIDASE ALFA-NGPT
     Dosage: 1992 MG, QOW
     Route: 042
  3. BUPROPION [Concomitant]
     Active Substance: BUPROPION
     Dosage: QD
     Route: 048
     Dates: start: 20210809

REACTIONS (3)
  - Muscular weakness [Unknown]
  - Muscle fatigue [Unknown]
  - Dyspnoea [Unknown]
